FAERS Safety Report 9475262 (Version 2)
Quarter: 2013Q3

REPORT INFORMATION
  Report Type: Spontaneous
  Country: US (occurrence: US)
  Receive Date: 20130826
  Receipt Date: 20130918
  Transmission Date: 20140515
  Serious: No
  Sender: FDA-Public Use
  Company Number: US-009507513-1308USA008651

PATIENT
  Age: 37 Year
  Sex: Female
  Weight: 110.2 kg

DRUGS (10)
  1. SAPHRIS [Suspect]
     Indication: BIPOLAR I DISORDER
     Dosage: 10 MG, BID
     Route: 060
     Dates: start: 201105
  2. FUROSEMIDE [Concomitant]
  3. HYDROXYCHLOROQUINE SULFATE [Concomitant]
  4. PENICILLIN V [Concomitant]
  5. METHYLPREDNISOLONE [Concomitant]
  6. CARVEDILOL [Concomitant]
  7. METOLAZONE [Concomitant]
  8. OMEPRAZOLE [Concomitant]
  9. METFORMIN [Concomitant]
  10. THIOCTIC ACID [Concomitant]

REACTIONS (5)
  - Nausea [Unknown]
  - Insomnia [Recovered/Resolved]
  - Wrong technique in drug usage process [Unknown]
  - Product blister packaging issue [Unknown]
  - Therapeutic response unexpected [Unknown]
